FAERS Safety Report 11919759 (Version 2)
Quarter: 2016Q1

REPORT INFORMATION
  Report Type: Spontaneous
  Country: US (occurrence: US)
  Receive Date: 20160115
  Receipt Date: 20160119
  Transmission Date: 20160526
  Serious: Yes (Other)
  Sender: FDA-Public Use
  Company Number: US-ASTRAZENECA-2016SE03590

PATIENT
  Sex: Female

DRUGS (1)
  1. FASLODEX [Suspect]
     Active Substance: FULVESTRANT
     Indication: NEOPLASM MALIGNANT
     Dosage: 500 MG DAY 1, 15 AND 29 AND 500 MG MONTHLY
     Route: 030
     Dates: start: 2014, end: 201601

REACTIONS (2)
  - Dyspnoea [Unknown]
  - Angioedema [Unknown]
